FAERS Safety Report 9774263 (Version 1)
Quarter: 2013Q4

REPORT INFORMATION
  Report Type: Spontaneous
  Country: CA (occurrence: CA)
  Receive Date: 20131220
  Receipt Date: 20131220
  Transmission Date: 20140711
  Serious: Yes (Other)
  Sender: FDA-Public Use
  Company Number: CA-MYLANLABS-2013S1027634

PATIENT
  Age: 5 Month
  Sex: 0

DRUGS (2)
  1. MELPHALAN [Suspect]
     Indication: RETINOBLASTOMA
     Dosage: MELPHALAN 2.5MG IN 30ML SODIUM CHLORIDE; 1 ML/MIN; 30MIN PER EYE; 1ST ADR AFTER 1.25MG IN RIGHT EYE
     Route: 013
  2. SODIUM CHLORIDE [Concomitant]
     Dosage: MELPHALAN 2.5MG IN 30ML SODIUM CHLORIDE; 1 ML/MIN; 30MIN PER EYE; 1ST ADR AFTER 1.25MG IN RIGHT EYE
     Route: 013

REACTIONS (1)
  - Retinal ischaemia [Recovered/Resolved]
